FAERS Safety Report 12124061 (Version 2)
Quarter: 2016Q1

REPORT INFORMATION
  Report Type: Spontaneous
  Country: GB (occurrence: GB)
  Receive Date: 20160229
  Receipt Date: 20160229
  Transmission Date: 20160526
  Serious: Yes (Disabling, Other)
  Sender: FDA-Public Use
  Company Number: GB-TEVA-636446ACC

PATIENT
  Age: 25 Year
  Sex: Female
  Weight: 67 kg

DRUGS (5)
  1. ACCORD HEALTHCARE FLUOXETINE [Suspect]
     Active Substance: FLUOXETINE HYDROCHLORIDE
     Indication: DEPRESSION
     Dosage: 20MG AND 40MG
     Route: 048
     Dates: start: 201508, end: 201511
  2. BUSCOPAN [Concomitant]
     Active Substance: BUTYLSCOPOLAMINE BROMIDE
  3. PROMAZINE [Concomitant]
     Active Substance: PROMAZINE
  4. PREGABALIN. [Suspect]
     Active Substance: PREGABALIN
     Indication: GENERALISED ANXIETY DISORDER
     Route: 048
     Dates: start: 201507, end: 201601
  5. QUETIAPINE [Suspect]
     Active Substance: QUETIAPINE
     Indication: ACUTE PSYCHOSIS
     Dosage: MODIFIED RELEASE
     Route: 048
     Dates: start: 201511, end: 201601

REACTIONS (8)
  - Acute psychosis [Recovered/Resolved]
  - Non-24-hour sleep-wake disorder [Recovered/Resolved with Sequelae]
  - Alopecia [Recovering/Resolving]
  - Pruritus generalised [Recovered/Resolved with Sequelae]
  - Agitated depression [Recovering/Resolving]
  - Formication [Recovered/Resolved with Sequelae]
  - Blister infected [Recovering/Resolving]
  - Paranoia [Recovered/Resolved]

NARRATIVE: CASE EVENT DATE: 201508
